FAERS Safety Report 6900774-1 (Version None)
Quarter: 2010Q3

REPORT INFORMATION
  Report Type: 
  Country: None (occurrence: None)
  Receive Date: 20100803
  Receipt Date: 20100723
  Transmission Date: 20110219
  Serious: Yes (Death)
  Sender: FDA-Public Use
  Company Number: GR-CUBIST-2010S1001001

PATIENT
  Age: 53 Year
  Sex: Female
  Weight: 70 kg

DRUGS (1)
  1. CUBICIN [Suspect]
     Indication: BACTERAEMIA
     Route: 042
     Dates: start: 20100521, end: 20100602

REACTIONS (2)
  - PNEUMONIA ASPIRATION [None]
  - SEPTIC SHOCK [None]
